FAERS Safety Report 4556687-6 (Version None)
Quarter: 2005Q1

REPORT INFORMATION
  Report Type: 
  Country: None (occurrence: None)
  Receive Date: 20050118
  Receipt Date: 20050103
  Transmission Date: 20050727
  Serious: Yes (Death)
  Sender: FDA-Public Use
  Company Number: SUS1-2004-00783

PATIENT
  Age: 19 Year
  Sex: Female
  Weight: 90.7 kg

DRUGS (3)
  1. CARBATROL [Suspect]
     Indication: AFFECT LABILITY
     Dosage: 300 MG, EVERY 12 HOURS,ORAL
     Route: 048
     Dates: start: 20041021
  2. SEROQUEL [Suspect]
     Indication: DELUSION
     Dosage: 200 MG, EVERY HS, ORAL
     Route: 048
     Dates: start: 20040716
  3. RISPERDAL [Suspect]
     Indication: HYPERACUSIS
     Dosage: 1 MG, 1X/DAY:QD IN AM

REACTIONS (5)
  - BRONCHITIS [None]
  - DIZZINESS [None]
  - LOSS OF CONSCIOUSNESS [None]
  - PAIN IN EXTREMITY [None]
  - PULMONARY EMBOLISM [None]
